FAERS Safety Report 5027165-5 (Version None)
Quarter: 2006Q2

REPORT INFORMATION
  Report Type: 
  Country: None (occurrence: None)
  Receive Date: 20060501
  Receipt Date: 20060124
  Transmission Date: 20061013
  Serious: No
  Sender: FDA-Public Use
  Company Number: 2006PV007570

PATIENT
  Sex: Male

DRUGS (1)
  1. SYMLIN INJECTION (0.6 MG/ML) [Suspect]
     Indication: DRUG USE FOR UNKNOWN INDICATION
     Dosage: SC
     Route: 058

REACTIONS (1)
  - CHEST PAIN [None]
